FAERS Safety Report 9814407 (Version 1)
Quarter: 2014Q1

REPORT INFORMATION
  Report Type: Spontaneous
  Country: US (occurrence: US)
  Receive Date: 20140113
  Receipt Date: 20140113
  Transmission Date: 20141002
  Serious: No
  Sender: FDA-Public Use
  Company Number: US-TEVA-456000USA

PATIENT
  Age: 37 Year
  Sex: Female
  Weight: 74.91 kg

DRUGS (1)
  1. PLAN B [Suspect]
     Indication: MENSTRUATION IRREGULAR
     Route: 048
     Dates: start: 20131208, end: 20131209

REACTIONS (7)
  - Hypertension [Unknown]
  - Blood glucose decreased [Unknown]
  - Menstruation irregular [Recovered/Resolved]
  - Abdominal pain lower [Recovered/Resolved]
  - Menstruation delayed [Not Recovered/Not Resolved]
  - Dizziness [Not Recovered/Not Resolved]
  - Expired drug administered [Unknown]
